FAERS Safety Report 24025299 (Version 1)
Quarter: 2024Q2

REPORT INFORMATION
  Report Type: Spontaneous
  Country: US (occurrence: US)
  Receive Date: 20240628
  Receipt Date: 20240628
  Transmission Date: 20240716
  Serious: No
  Sender: FDA-Public Use
  Company Number: US-ROCHE-3409695

PATIENT

DRUGS (2)
  1. ALECENSA [Suspect]
     Active Substance: ALECTINIB HYDROCHLORIDE
     Indication: Product used for unknown indication
     Route: 065
  2. LORBRENA [Suspect]
     Active Substance: LORLATINIB
     Indication: Product used for unknown indication
     Dosage: TAKE 1 TABLET DAILY
     Route: 065
     Dates: start: 20230728

REACTIONS (5)
  - Ocular neoplasm [Not Recovered/Not Resolved]
  - Feeling abnormal [Not Recovered/Not Resolved]
  - Delirium [Not Recovered/Not Resolved]
  - Aggression [Not Recovered/Not Resolved]
  - Hunger [Not Recovered/Not Resolved]
